FAERS Safety Report 6641190-X (Version None)
Quarter: 2010Q1

REPORT INFORMATION
  Report Type: 
  Country: None (occurrence: None)
  Receive Date: 20100318
  Receipt Date: 20100308
  Transmission Date: 20100710
  Serious: Yes (Other)
  Sender: FDA-Public Use
  Company Number: PHHY2010FR14595

PATIENT
  Age: 69 Year
  Sex: Female

DRUGS (5)
  1. VOLTAREN [Suspect]
     Indication: SPINAL CORD COMPRESSION
     Dosage: UNK
     Dates: start: 20100201
  2. CIBACALCINE [Suspect]
     Indication: SPINAL CORD COMPRESSION
     Dosage: 0.5 MG, UNK
     Dates: start: 20100219, end: 20100224
  3. ZECLAR [Suspect]
     Indication: RESPIRATORY TRACT INFECTION
  4. TRAMADOL HCL [Concomitant]
     Dosage: UNK
  5. PROPOFAN [Concomitant]

REACTIONS (3)
  - DIARRHOEA [None]
  - NAUSEA [None]
  - PSEUDOMEMBRANOUS COLITIS [None]
